FAERS Safety Report 12416251 (Version 1)
Quarter: 2016Q2

REPORT INFORMATION
  Report Type: Spontaneous
  Country: JP (occurrence: JP)
  Receive Date: 20160530
  Receipt Date: 20160530
  Transmission Date: 20160815
  Serious: Yes (Hospitalization, Other)
  Sender: FDA-Public Use
  Company Number: JP-009507513-1604JPN006241

PATIENT
  Age: 88 Year
  Sex: Male

DRUGS (12)
  1. GENINAX [Concomitant]
     Active Substance: GARENOXACIN MESYLATE
     Dosage: 200 MG, BID
     Route: 048
  2. SINGULAIR [Suspect]
     Active Substance: MONTELUKAST SODIUM
     Indication: CHRONIC OBSTRUCTIVE PULMONARY DISEASE
     Dosage: 10 MG, QD
     Route: 048
  3. HOKUNALIN [Concomitant]
     Active Substance: TULOBUTEROL
     Dosage: 2 MG, QD; FORMULATION: TAPES
     Route: 062
  4. POSTERISAN H [Concomitant]
     Dosage: DAILY DOSE UNKNOWN, BID
     Route: 062
  5. OLMETEC [Concomitant]
     Active Substance: OLMESARTAN MEDOXOMIL
     Dosage: 10 MG, QD
     Route: 048
  6. BAKUMONDO-TO [Concomitant]
     Active Substance: HERBALS
     Dosage: 3 G, BID
     Route: 048
  7. CRAVIT [Concomitant]
     Active Substance: LEVOFLOXACIN
     Dosage: LEFT EYE AND DAILY DOSAGE UNKNOWN, TID; FORMULATION: OPHTHALMIC
     Route: 047
  8. MUCODYNE [Concomitant]
     Active Substance: CARBOCYSTEINE
     Dosage: 3 G, QD
     Route: 048
  9. DEPAS [Concomitant]
     Active Substance: ETIZOLAM
     Dosage: 0.25 MG, QD
     Route: 048
  10. FLUNASE [Concomitant]
     Active Substance: FLUTICASONE PROPIONATE
     Dosage: 50 MICROGRAM, BID; ROUTE: INHALATION
  11. DIART [Concomitant]
     Active Substance: AZOSEMIDE
     Dosage: 30 MG, QD
     Route: 048
  12. LORATADINE. [Concomitant]
     Active Substance: LORATADINE
     Dosage: 10 MG, QD
     Route: 048

REACTIONS (3)
  - Pneumonia bacterial [Recovered/Resolved]
  - Wrong technique in product usage process [Unknown]
  - Product use issue [Unknown]
